FAERS Safety Report 25272805 (Version 1)
Quarter: 2025Q2

REPORT INFORMATION
  Report Type: Spontaneous
  Country: GB (occurrence: GB)
  Receive Date: 20250506
  Receipt Date: 20250506
  Transmission Date: 20250717
  Serious: Yes (Disabling, Other)
  Sender: BAYER HEALTHCARE PHARMACEUTICALS INC.
  Company Number: None

PATIENT
  Age: 30 Year
  Sex: Male
  Weight: 75 kg

DRUGS (2)
  1. CIPROFLOXACIN [Suspect]
     Active Substance: CIPROFLOXACIN
     Indication: Pouchitis
     Dosage: 250 MG, BID
     Route: 048
  2. CIPROFLOXACIN [Suspect]
     Active Substance: CIPROFLOXACIN
     Indication: Pouchitis
     Dosage: 500 MG, BID
     Route: 048

REACTIONS (11)
  - Paraesthesia [Recovered/Resolved with Sequelae]
  - Palpitations [Recovered/Resolved]
  - Pain in extremity [None]
  - Hyperaesthesia [None]
  - Allodynia [None]
  - Dermatitis allergic [None]
  - Body temperature abnormal [None]
  - Hypoaesthesia [None]
  - Dizziness postural [None]
  - Disturbance in attention [None]
  - Neuropathy peripheral [None]

NARRATIVE: CASE EVENT DATE: 20200701
